FAERS Safety Report 5476717-7 (Version None)
Quarter: 2007Q4

REPORT INFORMATION
  Report Type: 
  Country: None (occurrence: None)
  Receive Date: 20071003
  Receipt Date: 20071003
  Transmission Date: 20080405
  Serious: Yes (Disabling, Other)
  Sender: FDA-Public Use
  Company Number: None

PATIENT
  Age: 40 Year
  Sex: Female
  Weight: 99.7913 kg

DRUGS (2)
  1. CYMBALTA [Suspect]
     Indication: DEPRESSION
     Dosage: 2 CAPSULES DAILY PO
     Route: 048
     Dates: start: 20050901, end: 20051013
  2. CYMBALTA [Suspect]
     Indication: DEPRESSION
     Dosage: 2 CAPSULES DAILY PO
     Route: 048
     Dates: start: 20070721, end: 20070926

REACTIONS (1)
  - HEPATITIS B [None]
